FAERS Safety Report 5707518-X (Version None)
Quarter: 2008Q2

REPORT INFORMATION
  Report Type: 
  Country: None (occurrence: None)
  Receive Date: 20080416
  Receipt Date: 20080408
  Transmission Date: 20081010
  Serious: Yes (Other)
  Sender: FDA-Public Use
  Company Number: US-GENENTECH-259253

PATIENT

DRUGS (2)
  1. RITUXAN [Suspect]
     Indication: CASTLEMAN'S DISEASE
  2. RITUXAN [Suspect]
     Indication: NON-HODGKIN'S LYMPHOMA

REACTIONS (2)
  - HODGKIN'S DISEASE [None]
  - NON-HODGKIN'S LYMPHOMA [None]
